FAERS Safety Report 5290081-8 (Version None)
Quarter: 2007Q1

REPORT INFORMATION
  Report Type: 
  Country: None (occurrence: None)
  Receive Date: 20070330
  Receipt Date: 20070316
  Transmission Date: 20070707
  Serious: Yes (Other)
  Sender: FDA-Public Use
  Company Number: SPV1-2006-01262

PATIENT
  Age: 66 Year
  Sex: Male

DRUGS (5)
  1. PENTASA [Suspect]
     Dosage: 3000 MG DAILY, ORAL
     Route: 048
     Dates: end: 20060411
  2. PHOSPHORAL(SODIUM PHOSPHATE DIBASIC, SODIUM PHOSPHATE MONOBASIC (ANHYD [Suspect]
     Indication: LAXATIVE SUPPORTIVE CARE
     Dosage: 90 ML DAILY, ORAL
     Route: 048
     Dates: start: 20060330, end: 20060330
  3. CYANOCOBALAMIN [Concomitant]
  4. CHOLESTYRAMINE [Concomitant]
  5. LANSOPRAZOLE [Concomitant]

REACTIONS (4)
  - INTESTINAL HAEMORRHAGE [None]
  - PROCEDURAL COMPLICATION [None]
  - PYREXIA [None]
  - RENAL FAILURE [None]
